FAERS Safety Report 4284881-0 (Version None)
Quarter: 2004Q1

REPORT INFORMATION
  Report Type: 
  Country: None (occurrence: None)
  Receive Date: 20040204
  Receipt Date: 20040123
  Transmission Date: 20041129
  Serious: Yes (Hospitalization)
  Sender: FDA-Public Use
  Company Number: PHRM2004FR00643

PATIENT
  Age: 37 Year
  Sex: Male

DRUGS (2)
  1. LIORESAL [Suspect]
     Route: 048
     Dates: start: 20031002, end: 20031201
  2. TRIFLUCAN [Suspect]
     Dosage: 400 MG, TID
     Route: 048
     Dates: start: 20031023, end: 20031201

REACTIONS (4)
  - ANAEMIA [None]
  - COMA [None]
  - NEUTROPENIA [None]
  - SEPTIC SHOCK [None]
